FAERS Safety Report 4518079-5 (Version None)
Quarter: 2004Q4

REPORT INFORMATION
  Report Type: 
  Country: None (occurrence: None)
  Receive Date: 20041203
  Receipt Date: 20041122
  Transmission Date: 20050328
  Serious: Yes (Other)
  Sender: FDA-Public Use
  Company Number: FR-GLAXOSMITHKLINE-B0358233A

PATIENT
  Age: 13 Year
  Sex: Male
  Weight: 40 kg

DRUGS (2)
  1. LAMICTAL [Suspect]
     Indication: EPILEPSY
     Dosage: 25MG PER DAY
     Route: 048
     Dates: start: 20041112
  2. LAMICTAL [Suspect]
     Dosage: 50MG PER DAY
     Route: 048

REACTIONS (6)
  - CONFUSIONAL STATE [None]
  - DYSGEUSIA [None]
  - EPILEPSY [None]
  - FATIGUE [None]
  - HYPERTONIA [None]
  - SPEECH DISORDER [None]
